FAERS Safety Report 5598289-9 (Version None)
Quarter: 2008Q1

REPORT INFORMATION
  Report Type: 
  Country: None (occurrence: None)
  Receive Date: 20080122
  Receipt Date: 20080114
  Transmission Date: 20080703
  Serious: Yes (Hospitalization)
  Sender: FDA-Public Use
  Company Number: FR-AVENTIS-200810185FR

PATIENT
  Age: 89 Year
  Sex: Female

DRUGS (9)
  1. LASILIX                            /00032601/ [Suspect]
     Route: 048
     Dates: end: 20070914
  2. RAMIPRIL [Suspect]
     Dates: end: 20070914
  3. TAHOR [Concomitant]
  4. OMEPRAZOLE [Concomitant]
  5. STABLON [Concomitant]
  6. STILNOX                            /00914901/ [Concomitant]
  7. AMIODARONE [Concomitant]
  8. CARVEDILOL [Concomitant]
  9. PREVISCAN                          /00789001/ [Concomitant]

REACTIONS (3)
  - BLOOD CREATININE INCREASED [None]
  - BLOOD UREA INCREASED [None]
  - DRUG INTERACTION [None]
